FAERS Safety Report 8891658 (Version 2)
Quarter: 2012Q4

REPORT INFORMATION
  Report Type: 
  Country: US (occurrence: US)
  Receive Date: 20121107
  Receipt Date: 20121120
  Transmission Date: 20130627
  Serious: Yes (Hospitalization)
  Sender: FDA-Public Use
  Company Number: US-009507513-1210USA011181

PATIENT
  Sex: Female

DRUGS (3)
  1. MIRTAZAPINE [Suspect]
     Indication: DEPRESSION
     Dosage: 15 mg, Once
     Route: 048
     Dates: start: 200103, end: 200103
  2. LIPITOR [Concomitant]
  3. CLONAZEPAM [Concomitant]

REACTIONS (3)
  - Generalised erythema [Recovered/Resolved]
  - Rash macular [Recovered/Resolved]
  - Dyspnoea [Recovered/Resolved]
